FAERS Safety Report 4431781-9 (Version None)
Quarter: 2004Q3

REPORT INFORMATION
  Report Type: 
  Country: None (occurrence: None)
  Receive Date: 20040825
  Receipt Date: 20040813
  Transmission Date: 20050211
  Serious: Yes (Hospitalization)
  Sender: FDA-Public Use
  Company Number: ES-JNJFOC-20040804463

PATIENT
  Age: 53 Year
  Sex: Female

DRUGS (2)
  1. TOPAMAX [Suspect]
     Indication: NEURALGIA
     Route: 049
     Dates: start: 20030221, end: 20030307
  2. TRAMADOL HCL [Suspect]
     Indication: NEURALGIA
     Route: 049

REACTIONS (1)
  - ABDOMINAL DISTENSION [None]
